FAERS Safety Report 10022453 (Version 2)
Quarter: 2014Q2

REPORT INFORMATION
  Report Type: Report from Study
  Country: DE (occurrence: DE)
  Receive Date: 20140319
  Receipt Date: 20140604
  Transmission Date: 20141212
  Serious: Yes (Hospitalization, Other)
  Sender: FDA-Public Use
  Company Number: DE-ABBVIE-14P-062-1211519-00

PATIENT
  Age: 38 Year
  Sex: Female
  Weight: 54 kg

DRUGS (2)
  1. HUMIRA [Suspect]
     Indication: CROHN^S DISEASE
     Route: 058
     Dates: start: 20101222, end: 201109
  2. HUMIRA [Suspect]
     Route: 058
     Dates: start: 201302, end: 201401

REACTIONS (5)
  - Fistula [Unknown]
  - Crohn^s disease [Unknown]
  - Nasopharyngitis [Recovered/Resolved]
  - Drug effect decreased [Unknown]
  - Intestinal stenosis [Unknown]
